FAERS Safety Report 24322829 (Version 1)
Quarter: 2024Q3

REPORT INFORMATION
  Report Type: Spontaneous
  Country: US (occurrence: US)
  Receive Date: 20240916
  Receipt Date: 20240916
  Transmission Date: 20241016
  Serious: Yes (Death, Other)
  Sender: GLAXOSMITHKLINE
  Company Number: US-GLAXOSMITHKLINE-US2024113591

PATIENT

DRUGS (1)
  1. TRELEGY ELLIPTA [Suspect]
     Active Substance: FLUTICASONE FUROATE\UMECLIDINIUM BROMIDE\VILANTEROL TRIFENATATE
     Indication: Chronic obstructive pulmonary disease
     Dosage: TRELEGY ELLIPTA 200/62.5/25MCG INH 30 1 PUFF/DAILY
     Dates: start: 20240404, end: 20240907

REACTIONS (1)
  - Death [Fatal]

NARRATIVE: CASE EVENT DATE: 20240907
